FAERS Safety Report 6636042-5 (Version None)
Quarter: 2010Q1

REPORT INFORMATION
  Report Type: 
  Country: None (occurrence: None)
  Receive Date: 20100311
  Receipt Date: 20100308
  Transmission Date: 20100710
  Serious: Yes (Hospitalization)
  Sender: FDA-Public Use
  Company Number: WAES 1003USA01017

PATIENT
  Age: 52 Year
  Sex: Female
  Weight: 118.8424 kg

DRUGS (6)
  1. HYZAAR [Suspect]
     Dosage: PO
     Route: 048
  2. RAD-001 UNK [Suspect]
     Indication: CARCINOID TUMOUR
     Dosage: 10 MG/DAILY/PO; 10 MG/DAILY/PO
     Route: 048
     Dates: start: 20090922
  3. RAD-001 UNK [Suspect]
     Indication: CARCINOID TUMOUR
     Dosage: 10 MG/DAILY/PO; 10 MG/DAILY/PO
     Route: 048
     Dates: start: 20091102
  4. BLINDED THERAPY UNK [Suspect]
     Indication: CARCINOID TUMOUR
     Dates: start: 20080422
  5. MOTRIN [Suspect]
  6. SANDOSTATIN [Concomitant]

REACTIONS (4)
  - BLOOD CULTURE POSITIVE [None]
  - CULTURE URINE POSITIVE [None]
  - ESCHERICHIA INFECTION [None]
  - RENAL FAILURE ACUTE [None]
